FAERS Safety Report 4608573-0 (Version None)
Quarter: 2005Q1

REPORT INFORMATION
  Report Type: 
  Country: None (occurrence: None)
  Receive Date: 20050315
  Receipt Date: 20050307
  Transmission Date: 20050727
  Serious: Yes (Death)
  Sender: FDA-Public Use
  Company Number: FR-JNJFOC-20050302063

PATIENT
  Sex: Male

DRUGS (2)
  1. PROPULSID [Suspect]
     Route: 049
     Dates: start: 20030210, end: 20040624
  2. SPORANOX [Suspect]
     Indication: ASPERGILLOSIS
     Route: 065

REACTIONS (1)
  - HAEMOPTYSIS [None]
